FAERS Safety Report 4281633-2 (Version None)
Quarter: 2004Q1

REPORT INFORMATION
  Report Type: 
  Country: None (occurrence: None)
  Receive Date: 20040105
  Receipt Date: 20030314
  Transmission Date: 20041129
  Serious: Yes (Hospitalization)
  Sender: FDA-Public Use
  Company Number: US010324

PATIENT
  Age: 47 Year
  Sex: Female
  Weight: 164 kg

DRUGS (5)
  1. ACTIQ [Suspect]
     Indication: BACK PAIN
     Dosage: 1200 UG QID BUCCAL
     Route: 002
     Dates: start: 20010101, end: 20021001
  2. XANAX [Concomitant]
  3. ZOLOFT [Concomitant]
  4. IMITREX [Concomitant]
  5. FIORINAL [Concomitant]

REACTIONS (2)
  - DENTAL CARIES [None]
  - ILEUS [None]
